FAERS Safety Report 10059861 (Version 1)
Quarter: 2014Q2

REPORT INFORMATION
  Report Type: Spontaneous
  Country: US (occurrence: US)
  Receive Date: 20140404
  Receipt Date: 20140404
  Transmission Date: 20141212
  Serious: Yes (Hospitalization)
  Sender: FDA-Public Use
  Company Number: US-GLAXOSMITHKLINE-A1029558A

PATIENT
  Age: 44 Year
  Sex: Male
  Weight: 115.2 kg

DRUGS (1)
  1. AVANDIA [Suspect]
     Indication: DIABETES MELLITUS
     Dosage: 4MG PER DAY
     Route: 048
     Dates: start: 2006, end: 2007

REACTIONS (3)
  - Ischaemic cardiomyopathy [Unknown]
  - Angina pectoris [Unknown]
  - Cardiac failure congestive [Unknown]
